FAERS Safety Report 5397233-7 (Version None)
Quarter: 2007Q3

REPORT INFORMATION
  Report Type: 
  Country: None (occurrence: None)
  Receive Date: 20070723
  Receipt Date: 20070706
  Transmission Date: 20080115
  Serious: Yes (Hospitalization)
  Sender: FDA-Public Use
  Company Number: 2006SP002035

PATIENT
  Age: 86 Year
  Sex: Female

DRUGS (4)
  1. LUNESTA [Suspect]
     Indication: INSOMNIA
     Dosage: 90 MG;1X;ORAL
     Route: 048
     Dates: start: 20060501, end: 20060501
  2. SUMATRIPTAN SUCCINATE [Concomitant]
  3. AMITRIPTYLINE W/ PERPHENAZINE [Concomitant]
  4. DIAZEPAM [Concomitant]

REACTIONS (10)
  - BLOOD BICARBONATE INCREASED [None]
  - CARDIAC TELEMETRY ABNORMAL [None]
  - COMA [None]
  - FALL [None]
  - FRACTURE [None]
  - HAEMOGLOBIN DECREASED [None]
  - HYPOTHERMIA [None]
  - INJURY [None]
  - OVERDOSE [None]
  - SUICIDE ATTEMPT [None]
